FAERS Safety Report 4772540-7 (Version None)
Quarter: 2005Q3

REPORT INFORMATION
  Report Type: 
  Country: None (occurrence: None)
  Receive Date: 20050919
  Receipt Date: 20050912
  Transmission Date: 20060218
  Serious: Yes (Other)
  Sender: FDA-Public Use
  Company Number: US-BRISTOL-MYERS SQUIBB COMPANY-13107867

PATIENT
  Age: 5 Decade
  Sex: Male

DRUGS (1)
  1. ERBITUX [Suspect]
     Route: 042
     Dates: start: 20050909, end: 20050909

REACTIONS (3)
  - BLOOD PRESSURE DECREASED [None]
  - FEELING ABNORMAL [None]
  - OXYGEN SATURATION DECREASED [None]
